FAERS Safety Report 25526394 (Version 4)
Quarter: 2025Q3

REPORT INFORMATION
  Report Type: Spontaneous
  Country: IN (occurrence: IN)
  Receive Date: 20250707
  Receipt Date: 20250718
  Transmission Date: 20251020
  Serious: Yes (Death, Other)
  Sender: PFIZER
  Company Number: IN-PFIZER INC-PV202400069854

PATIENT
  Age: 38 Year
  Sex: Female

DRUGS (3)
  1. LORLATINIB [Suspect]
     Active Substance: LORLATINIB
     Indication: Lung neoplasm malignant
     Dosage: 100 MG, 1X/DAY
     Route: 048
     Dates: start: 20240513
  2. LORLATINIB [Suspect]
     Active Substance: LORLATINIB
     Dosage: 100 MG, 1X/DAY
     Route: 048
     Dates: start: 20240523
  3. LORLATINIB [Suspect]
     Active Substance: LORLATINIB
     Dosage: 50 MG
     Route: 048

REACTIONS (26)
  - Death [Fatal]
  - Malignant neoplasm progression [Unknown]
  - Lung neoplasm malignant [Unknown]
  - Weight increased [Not Recovered/Not Resolved]
  - Fatigue [Not Recovered/Not Resolved]
  - Asthenia [Not Recovered/Not Resolved]
  - Flatulence [Unknown]
  - Abdominal distension [Unknown]
  - Hyperchlorhydria [Unknown]
  - Dyspepsia [Unknown]
  - Pain [Unknown]
  - Dyspnoea [Not Recovered/Not Resolved]
  - Anxiety [Unknown]
  - Tension [Unknown]
  - Stress [Unknown]
  - Depression [Unknown]
  - Insomnia [Not Recovered/Not Resolved]
  - Blood test abnormal [Unknown]
  - Gastrointestinal disorder [Not Recovered/Not Resolved]
  - Malaise [Not Recovered/Not Resolved]
  - Peripheral swelling [Not Recovered/Not Resolved]
  - Pain in extremity [Not Recovered/Not Resolved]
  - Dysstasia [Unknown]
  - Back pain [Unknown]
  - Chest pain [Unknown]
  - Jaundice [Unknown]

NARRATIVE: CASE EVENT DATE: 20240101
